FAERS Safety Report 23697842 (Version 1)
Quarter: 2024Q2

REPORT INFORMATION
  Report Type: Spontaneous
  Country: US (occurrence: None)
  Receive Date: 20240401
  Receipt Date: 20240401
  Transmission Date: 20240716
  Serious: No
  Sender: FDA-Public Use
  Company Number: None

PATIENT

DRUGS (2)
  1. ATROPINE SULFATE [Suspect]
     Active Substance: ATROPINE SULFATE
     Dosage: OTHER STRENGTH : 1 MG/10 ML ;?
  2. DEXTROSE, SODIUM CHLORIDE, AND POTASSIUM CHLORIDE [Suspect]
     Active Substance: DEXTROSE\POTASSIUM CHLORIDE\SODIUM CHLORIDE

REACTIONS (3)
  - Product packaging confusion [None]
  - Product selection error [None]
  - Wrong product administered [None]
